FAERS Safety Report 10334941 (Version 1)
Quarter: 2014Q3

REPORT INFORMATION
  Report Type: Spontaneous
  Country: US (occurrence: None)
  Receive Date: 20140721
  Receipt Date: 20140721
  Transmission Date: 20150326
  Serious: Yes (Other)
  Sender: FDA-Public Use
  Company Number: 2014VER00093

PATIENT
  Age: 28 Year
  Sex: Female

DRUGS (3)
  1. MYORISAN [Suspect]
     Active Substance: ISOTRETINOIN
     Indication: ACNE
     Dates: start: 20140326, end: 20140625
  2. XANAX [Concomitant]
     Active Substance: ALPRAZOLAM
  3. ATAPRO [Concomitant]

REACTIONS (2)
  - Mood altered [None]
  - Headache [None]

NARRATIVE: CASE EVENT DATE: 20140620
